FAERS Safety Report 25969431 (Version 3)
Quarter: 2025Q4

REPORT INFORMATION
  Report Type: Spontaneous
  Country: US (occurrence: US)
  Receive Date: 20251028
  Receipt Date: 20251222
  Transmission Date: 20260118
  Serious: Yes (Other)
  Sender: SANDOZ
  Company Number: US-SANDOZ-SDZ2025US079013

PATIENT
  Age: 34 Year
  Sex: Female
  Weight: 68.934 kg

DRUGS (13)
  1. MYCOPHENOLATE MOFETIL [Suspect]
     Active Substance: MYCOPHENOLATE MOFETIL
     Indication: Renal transplant
     Dosage: 360 MG, BID
     Dates: start: 20210210, end: 20250917
  2. MYCOPHENOLATE MOFETIL [Suspect]
     Active Substance: MYCOPHENOLATE MOFETIL
     Indication: Pancreas transplant
  3. AZATHIOPRINE [Concomitant]
     Active Substance: AZATHIOPRINE
     Indication: Renal transplant
     Dosage: 100 MG, BID
     Dates: start: 20250917
  4. ATORVASTATIN [Concomitant]
     Active Substance: ATORVASTATIN
     Indication: Blood cholesterol
     Dosage: 40 MG, QD
     Dates: start: 2021
  5. VITAMIN D [Concomitant]
     Active Substance: VITAMIN D NOS
     Indication: Vitamin D deficiency
     Dosage: 50000 IU, QW
     Dates: start: 2020
  6. GABAPENTIN [Concomitant]
     Active Substance: GABAPENTIN
     Indication: Neurogenic bladder
     Dosage: 300 MG, TID
     Dates: start: 2022
  7. OXYBUTYNIN [Concomitant]
     Active Substance: OXYBUTYNIN
     Indication: Hypertonic bladder
     Dosage: 10 MG, QD
     Dates: start: 2022
  8. TACROLIMUS [Concomitant]
     Active Substance: TACROLIMUS
     Indication: Renal transplant
     Dosage: 1MG IN AM AND 2MG IN PM
     Dates: start: 2009
  9. TACROLIMUS [Concomitant]
     Active Substance: TACROLIMUS
     Indication: Immunosuppression
  10. PREDNISONE [Concomitant]
     Active Substance: PREDNISONE
     Indication: Renal transplant
     Dosage: 5 MG, QD
     Dates: start: 2009
  11. PREDNISONE [Concomitant]
     Active Substance: PREDNISONE
     Indication: Immunosuppression
  12. LEXAPRO [Concomitant]
     Active Substance: ESCITALOPRAM OXALATE
     Indication: Anxiety
     Dosage: 10 MG, QD
     Dates: start: 2022
  13. FERROUS SULFATE [Concomitant]
     Active Substance: FERROUS SULFATE
     Indication: Supplementation therapy
     Dosage: 325 MG, TID
     Dates: start: 2024

REACTIONS (2)
  - Abortion spontaneous [Recovered/Resolved]
  - Exposure during pregnancy [Unknown]

NARRATIVE: CASE EVENT DATE: 20250926
